FAERS Safety Report 25762394 (Version 1)
Quarter: 2025Q3

REPORT INFORMATION
  Report Type: Report from Study
  Country: EU (occurrence: EU)
  Receive Date: 20250904
  Receipt Date: 20250904
  Transmission Date: 20251020
  Serious: Yes (Hospitalization)
  Sender: MYLAN
  Company Number: EU-JAZZ PHARMACEUTICALS-2023-NL-019127

PATIENT
  Age: 71 Year
  Sex: Male
  Weight: 79.2 kg

DRUGS (28)
  1. OXALIPLATIN [Suspect]
     Active Substance: OXALIPLATIN
     Indication: Adenocarcinoma
     Dosage: 130 MILLIGRAM/SQ. METER, Q3W
     Dates: start: 20230217, end: 20230217
  2. OXALIPLATIN [Suspect]
     Active Substance: OXALIPLATIN
     Dosage: 130 MILLIGRAM/SQ. METER, Q3W
     Dates: start: 20230217, end: 20230217
  3. OXALIPLATIN [Suspect]
     Active Substance: OXALIPLATIN
     Dosage: 130 MILLIGRAM/SQ. METER, Q3W
     Route: 042
     Dates: start: 20230217, end: 20230217
  4. OXALIPLATIN [Suspect]
     Active Substance: OXALIPLATIN
     Dosage: 130 MILLIGRAM/SQ. METER, Q3W
     Route: 042
     Dates: start: 20230217, end: 20230217
  5. OXALIPLATIN [Suspect]
     Active Substance: OXALIPLATIN
     Dosage: 130 MILLIGRAM/SQ. METER, Q3W, CYCLE 4, DAY 1
     Dates: start: 20230512
  6. OXALIPLATIN [Suspect]
     Active Substance: OXALIPLATIN
     Dosage: 130 MILLIGRAM/SQ. METER, Q3W, CYCLE 4, DAY 1
     Dates: start: 20230512
  7. OXALIPLATIN [Suspect]
     Active Substance: OXALIPLATIN
     Dosage: 130 MILLIGRAM/SQ. METER, Q3W, CYCLE 4, DAY 1
     Route: 042
     Dates: start: 20230512
  8. OXALIPLATIN [Suspect]
     Active Substance: OXALIPLATIN
     Dosage: 130 MILLIGRAM/SQ. METER, Q3W, CYCLE 4, DAY 1
     Route: 042
     Dates: start: 20230512
  9. CAPECITABINE [Suspect]
     Active Substance: CAPECITABINE
     Indication: Adenocarcinoma
     Dosage: 750 MILLIGRAM/SQ. METER, BID
     Dates: start: 20230217, end: 20230217
  10. CAPECITABINE [Suspect]
     Active Substance: CAPECITABINE
     Dosage: 750 MILLIGRAM/SQ. METER, BID
     Dates: start: 20230217, end: 20230217
  11. CAPECITABINE [Suspect]
     Active Substance: CAPECITABINE
     Dosage: 750 MILLIGRAM/SQ. METER, BID
     Route: 065
     Dates: start: 20230217, end: 20230217
  12. CAPECITABINE [Suspect]
     Active Substance: CAPECITABINE
     Dosage: 750 MILLIGRAM/SQ. METER, BID
     Route: 065
     Dates: start: 20230217, end: 20230217
  13. CAPECITABINE [Suspect]
     Active Substance: CAPECITABINE
     Dosage: 750 MICROGRAM/SQ. METER, BID, (CYCLE 4, DAY 14
     Dates: start: 20230526
  14. CAPECITABINE [Suspect]
     Active Substance: CAPECITABINE
     Dosage: 750 MICROGRAM/SQ. METER, BID, (CYCLE 4, DAY 14
     Dates: start: 20230526
  15. CAPECITABINE [Suspect]
     Active Substance: CAPECITABINE
     Dosage: 750 MICROGRAM/SQ. METER, BID, (CYCLE 4, DAY 14
     Route: 048
     Dates: start: 20230526
  16. CAPECITABINE [Suspect]
     Active Substance: CAPECITABINE
     Dosage: 750 MICROGRAM/SQ. METER, BID, (CYCLE 4, DAY 14
     Route: 048
     Dates: start: 20230526
  17. TRASTUZUMAB [Suspect]
     Active Substance: TRASTUZUMAB
     Indication: Adenocarcinoma
     Dates: start: 20230810, end: 20230831
  18. TRASTUZUMAB [Suspect]
     Active Substance: TRASTUZUMAB
     Route: 042
     Dates: start: 20230810, end: 20230831
  19. TRASTUZUMAB [Suspect]
     Active Substance: TRASTUZUMAB
     Route: 042
     Dates: start: 20230810, end: 20230831
  20. TRASTUZUMAB [Suspect]
     Active Substance: TRASTUZUMAB
     Dates: start: 20230810, end: 20230831
  21. ZANIDATAMAB [Suspect]
     Active Substance: ZANIDATAMAB
     Indication: Oesophageal adenocarcinoma
     Dosage: 1800 MILLIGRAM, Q3W, CYCLE 4, DAY 1
     Dates: start: 20230217, end: 20230217
  22. ZANIDATAMAB [Suspect]
     Active Substance: ZANIDATAMAB
     Dosage: 1800 MILLIGRAM, Q3W, CYCLE 4, DAY 1
     Dates: start: 20230217, end: 20230217
  23. ZANIDATAMAB [Suspect]
     Active Substance: ZANIDATAMAB
     Dosage: 1800 MILLIGRAM, Q3W, CYCLE 4, DAY 1
     Route: 042
     Dates: start: 20230217, end: 20230217
  24. ZANIDATAMAB [Suspect]
     Active Substance: ZANIDATAMAB
     Dosage: 1800 MILLIGRAM, Q3W, CYCLE 4, DAY 1
     Route: 042
     Dates: start: 20230217, end: 20230217
  25. ZANIDATAMAB [Suspect]
     Active Substance: ZANIDATAMAB
     Dosage: 1800 MILLIGRAM, Q3W,CYCLE 4, DAY 1
     Dates: start: 20230512
  26. ZANIDATAMAB [Suspect]
     Active Substance: ZANIDATAMAB
     Dosage: 1800 MILLIGRAM, Q3W,CYCLE 4, DAY 1
     Dates: start: 20230512
  27. ZANIDATAMAB [Suspect]
     Active Substance: ZANIDATAMAB
     Dosage: 1800 MILLIGRAM, Q3W,CYCLE 4, DAY 1
     Route: 042
     Dates: start: 20230512
  28. ZANIDATAMAB [Suspect]
     Active Substance: ZANIDATAMAB
     Dosage: 1800 MILLIGRAM, Q3W,CYCLE 4, DAY 1
     Route: 042
     Dates: start: 20230512

REACTIONS (1)
  - Cardiac failure [Recovered/Resolved]

NARRATIVE: CASE EVENT DATE: 20230906
